FAERS Safety Report 8958673 (Version 1)
Quarter: 2012Q4

REPORT INFORMATION
  Report Type: 
  Country: US (occurrence: US)
  Receive Date: 20121211
  Receipt Date: 20121211
  Transmission Date: 20130627
  Serious: Yes (Other)
  Sender: FDA-Public Use
  Company Number: US-ROXANE LABORATORIES, INC.-2012-RO-02543RO

PATIENT
  Age: 63 None
  Sex: Male

DRUGS (1)
  1. MERCAPTOPURINE [Suspect]
     Indication: CROHN^S DISEASE
     Dosage: 75 mg
     Route: 048
     Dates: start: 2000, end: 201209

REACTIONS (3)
  - Hepatic cirrhosis [Not Recovered/Not Resolved]
  - Platelet count decreased [Recovered/Resolved]
  - Varices oesophageal [Unknown]
